FAERS Safety Report 5386570-8 (Version None)
Quarter: 2007Q3

REPORT INFORMATION
  Report Type: 
  Country: None (occurrence: None)
  Receive Date: 20070713
  Receipt Date: 20070705
  Transmission Date: 20080115
  Serious: Yes (Other)
  Sender: FDA-Public Use
  Company Number: B0471613A

PATIENT
  Age: 38 Year
  Sex: Male

DRUGS (1)
  1. ZOVIRAX [Suspect]
     Dosage: 800MG FIVE TIMES PER DAY
     Route: 048
     Dates: start: 20070320, end: 20070327

REACTIONS (6)
  - ANOREXIA [None]
  - FATIGUE [None]
  - HEPATITIS B [None]
  - JAUNDICE [None]
  - MALAISE [None]
  - NAUSEA [None]
